FAERS Safety Report 9356287 (Version 1)
Quarter: 2013Q2

REPORT INFORMATION
  Report Type: Spontaneous
  Country: KR (occurrence: None)
  Receive Date: 20130614
  Receipt Date: 20130614
  Transmission Date: 20140414
  Serious: Yes (Death, Hospitalization)
  Sender: FDA-Public Use
  Company Number: JP-2013-12069

PATIENT
  Age: 66 Year
  Sex: Female

DRUGS (3)
  1. OPC [Suspect]
     Route: 048
  2. NC-ASPIRIN [Suspect]
     Route: 048
  3. CLOPIDOGREL [Suspect]
     Route: 048

REACTIONS (1)
  - Cerebral haemorrhage [None]
